FAERS Safety Report 5416616-X (Version None)
Quarter: 2007Q3

REPORT INFORMATION
  Report Type: 
  Country: None (occurrence: None)
  Receive Date: 20070815
  Receipt Date: 20070815
  Transmission Date: 20080115
  Serious: Yes (Hospitalization)
  Sender: FDA-Public Use
  Company Number: None

PATIENT
  Sex: Male
  Weight: 63.5036 kg

DRUGS (1)
  1. CAMPRAL [Suspect]
     Indication: ALCOHOL POISONING
     Dates: start: 20070714, end: 20070720

REACTIONS (1)
  - STATUS EPILEPTICUS [None]
